FAERS Safety Report 5426174-1 (Version None)
Quarter: 2007Q3

REPORT INFORMATION
  Report Type: 
  Country: None (occurrence: None)
  Receive Date: 20070827
  Receipt Date: 20070820
  Transmission Date: 20080115
  Serious: Yes (Hospitalization)
  Sender: FDA-Public Use
  Company Number: A0673044A

PATIENT
  Age: 56 Year
  Sex: Female

DRUGS (5)
  1. WELLBUTRIN XL [Suspect]
     Indication: DEPRESSION
     Dosage: 150MG PER DAY
     Route: 048
     Dates: start: 20070718, end: 20070728
  2. PREDNISONE TAB [Suspect]
     Indication: STEVENS-JOHNSON SYNDROME
     Route: 065
  3. STEROIDS [Suspect]
  4. EXTRA STRENGTH TYLENOL [Concomitant]
  5. PROTONIX [Concomitant]

REACTIONS (10)
  - BLISTER [None]
  - CHEST PAIN [None]
  - DYSPNOEA [None]
  - GLOSSODYNIA [None]
  - HERPES VIRUS INFECTION [None]
  - IMMUNE SYSTEM DISORDER [None]
  - SKIN EXFOLIATION [None]
  - STEVENS-JOHNSON SYNDROME [None]
  - TONGUE BLISTERING [None]
  - VISUAL DISTURBANCE [None]
